FAERS Safety Report 5754846-8 (Version None)
Quarter: 2008Q2

REPORT INFORMATION
  Report Type: 
  Country: None (occurrence: None)
  Receive Date: 20080527
  Receipt Date: 20080514
  Transmission Date: 20081010
  Serious: Yes (Other)
  Sender: FDA-Public Use
  Company Number: B0521626A

PATIENT
  Sex: 0

DRUGS (1)
  1. ALKERAN [Suspect]

REACTIONS (2)
  - HEPATOTOXICITY [None]
  - NEPHROPATHY TOXIC [None]
